FAERS Safety Report 12899671 (Version 2)
Quarter: 2017Q2

REPORT INFORMATION
  Report Type: Spontaneous
  Country: US (occurrence: US)
  Receive Date: 20161101
  Receipt Date: 20170509
  Transmission Date: 20170830
  Serious: No
  Sender: FDA-Public Use
  Company Number: US-GLAXOSMITHKLINE-US2016159812

PATIENT
  Age: 85 Year
  Sex: Male

DRUGS (6)
  1. FLOVENT [Suspect]
     Active Substance: FLUTICASONE PROPIONATE
     Indication: ASTHMA
     Dosage: 1 PUFF(S), BID
     Route: 055
     Dates: start: 2011
  2. FLOVENT [Suspect]
     Active Substance: FLUTICASONE PROPIONATE
     Dosage: 1 PUFF(S), BID
     Route: 055
     Dates: start: 20170503, end: 20170503
  3. FLOVENT [Suspect]
     Active Substance: FLUTICASONE PROPIONATE
     Dosage: 1 PUFF(S), QD
     Route: 055
     Dates: start: 20170504, end: 20170505
  4. FLOVENT [Suspect]
     Active Substance: FLUTICASONE PROPIONATE
     Dosage: 1 PUFF(S), TID
     Route: 055
     Dates: start: 20170426, end: 20170502
  5. ASPIRIN. [Concomitant]
     Active Substance: ASPIRIN
  6. PROVENTIL [Concomitant]
     Active Substance: ALBUTEROL

REACTIONS (9)
  - Wrong technique in product usage process [Unknown]
  - Drug dose omission [Unknown]
  - Productive cough [Recovering/Resolving]
  - Inappropriate schedule of drug administration [Unknown]
  - Device use error [Unknown]
  - Underdose [Unknown]
  - Cough [Recovering/Resolving]
  - Tongue coated [Recovering/Resolving]
  - Overdose [Unknown]

NARRATIVE: CASE EVENT DATE: 2017
